FAERS Safety Report 7380294-3 (Version None)
Quarter: 2011Q1

REPORT INFORMATION
  Report Type: 
  Country: None (occurrence: None)
  Receive Date: 20110318
  Receipt Date: 20110303
  Transmission Date: 20110831
  Serious: Yes (Hospitalization)
  Sender: FDA-Public Use
  Company Number: 028739

PATIENT
  Age: 70 Year
  Sex: Male

DRUGS (2)
  1. KEPPRA [Suspect]
     Indication: EPILEPSY
     Dosage: 500, 1500 DOSE INCREASED,
  2. EPILIM CHRONO (EPILIM CHRONO) [Suspect]
     Indication: EPILEPSY
     Dosage: 2400, 1200, DOSE INCREASED;

REACTIONS (2)
  - CONVULSION [None]
  - TREMOR [None]
